FAERS Safety Report 9361767 (Version 1)
Quarter: 2013Q2

REPORT INFORMATION
  Report Type: Spontaneous
  Country: JP (occurrence: JP)
  Receive Date: 20130621
  Receipt Date: 20130621
  Transmission Date: 20140414
  Serious: Yes (Other)
  Sender: FDA-Public Use
  Company Number: JP-BRISTOL-MYERS SQUIBB COMPANY-19034115

PATIENT
  Age: 8 Decade
  Sex: Male

DRUGS (1)
  1. ERBITUX SOLN FOR INF 5MG/ML [Suspect]
     Indication: HEAD AND NECK CANCER
     Route: 041

REACTIONS (1)
  - Melaena [Unknown]
